FAERS Safety Report 20168484 (Version 1)
Quarter: 2021Q4

REPORT INFORMATION
  Report Type: Spontaneous
  Country: CA (occurrence: CA)
  Receive Date: 20211210
  Receipt Date: 20211210
  Transmission Date: 20220303
  Serious: Yes (Hospitalization, Other)
  Sender: FDA-Public Use
  Company Number: CA-TEVA-2021-CA-1985213

PATIENT
  Age: 5 Decade
  Sex: Female

DRUGS (2)
  1. METHOTREXATE [Suspect]
     Active Substance: METHOTREXATE
     Indication: Rheumatoid arthritis
     Route: 058
  2. METHOTREXATE [Suspect]
     Active Substance: METHOTREXATE
     Route: 058

REACTIONS (7)
  - Abdominal pain [Unknown]
  - Mouth ulceration [Unknown]
  - Nausea [Unknown]
  - Pancytopenia [Unknown]
  - Toxicity to various agents [Unknown]
  - Vomiting [Unknown]
  - Product administration error [Unknown]
